FAERS Safety Report 19799451 (Version 1)
Quarter: 2021Q3

REPORT INFORMATION
  Report Type: Spontaneous
  Country: DE (occurrence: DE)
  Receive Date: 20210907
  Receipt Date: 20210907
  Transmission Date: 20211014
  Serious: Yes (Hospitalization)
  Sender: FDA-Public Use
  Company Number: DE-MYLANLABS-2021M1058024

PATIENT
  Age: 74 Year
  Sex: Male

DRUGS (17)
  1. SITAGLIPTIN [Concomitant]
     Active Substance: SITAGLIPTIN
     Dosage: 100 MILLIGRAM, QD(100 MG, 1?0?0?0, TABLETTEN)
  2. NITRENDIPIN [Concomitant]
     Active Substance: NITRENDIPINE
     Dosage: 10 MILLIGRAM, QD(10 MG, 1?0?1?0, TABLETTEN)
  3. PHENPROCOUMON [Suspect]
     Active Substance: PHENPROCOUMON
     Indication: PRODUCT USED FOR UNKNOWN INDICATION
     Dosage: 3 MILLIGRAM AS NECESSARY(3 MG, NACH INR, TABLETTEN)
  4. RAMIPRIL. [Suspect]
     Active Substance: RAMIPRIL
     Indication: PRODUCT USED FOR UNKNOWN INDICATION
     Dosage: 10 MILLIGRAM, QD (10 MG, 1?0?0?0, TABLETTEN)
  5. PANTOPRAZOL                        /01263201/ [Concomitant]
     Active Substance: PANTOPRAZOLE
     Dosage: 40 MILLIGRAM, QD(40 MG, 1?0?0?0, TABLETTEN)
  6. MADOPAR LT [Concomitant]
     Active Substance: BENSERAZIDE HYDROCHLORIDE\LEVODOPA
     Dosage: 1 DOSAGE FORM, QD(25|100 MG, 1?0?0?0, TABLETTE ZUR HERSTELLUNG EINER SUSPENSION)
  7. METAMIZOL                          /06276701/ [Concomitant]
     Active Substance: METAMIZOLE
     Dosage: 500 MILLIGRAM AS NECESSARY (500 MG, BEI BEDARF BIS ZU 4 X, TABLETTEN)
  8. SPIRONOLACTONE. [Suspect]
     Active Substance: SPIRONOLACTONE
     Indication: PRODUCT USED FOR UNKNOWN INDICATION
     Dosage: 50 MILLIGRAM, QD(50 MG, 1?0?0?0, TABLETTEN)
  9. ALLOPURINOL. [Concomitant]
     Active Substance: ALLOPURINOL
     Dosage: 300 MILLIGRAM, QD(300 MG, 1?0?0?0, TABLETTEN)
  10. NEUPRO [Concomitant]
     Active Substance: ROTIGOTINE
     Dosage: 4 MG, 1 X, PFLASTER TRANSDERMAL
     Route: 062
  11. TAMSULOSIN [Concomitant]
     Active Substance: TAMSULOSIN
     Dosage: 0.4 MILLIGRAM, QD(0.4 MG, 0?0?1?0, TABLETTEN)
  12. CARBIDOPA/LEVODOPA [Concomitant]
     Active Substance: CARBIDOPA\LEVODOPA
     Dosage: 1 DOSAGE FORM, QD(50|200 MG, 0?0?0?1, RETARD?TABLETTEN)
  13. BROMAZEPAM [Concomitant]
     Active Substance: BROMAZEPAM
     Dosage: 1.5 MILLIGRAM AS NECESSARY (1.5 MG, BEI BEDARF, TABLETTEN)
  14. BISOPROLOL [Concomitant]
     Active Substance: BISOPROLOL
     Dosage: 5 MILLIGRAM Q12H (5 MG, 1?0?1?0, TABLETTEN)
  15. FUROSEMIDE. [Suspect]
     Active Substance: FUROSEMIDE
     Indication: PRODUCT USED FOR UNKNOWN INDICATION
     Dosage: UNK
  16. METFORMIN [Concomitant]
     Active Substance: METFORMIN HYDROCHLORIDE
     Dosage: 500 MILLIGRAM Q12H (500 MG, 1?0?1?0, TABLETTEN)
  17. BENSERAZIDE W/LEVODOPA [Concomitant]
     Active Substance: BENSERAZIDE\LEVODOPA
     Dosage: 3 DOSAGE FORM, QD (25|100 MG, 1?1?1?0, TABLETTEN)

REACTIONS (3)
  - Electrolyte imbalance [Unknown]
  - Blood creatinine increased [Unknown]
  - Anaemia [Unknown]
